FAERS Safety Report 22130510 (Version 1)
Quarter: 2023Q1

REPORT INFORMATION
  Report Type: Spontaneous
  Country: BE (occurrence: BE)
  Receive Date: 20230323
  Receipt Date: 20230323
  Transmission Date: 20230417
  Serious: Yes (Hospitalization)
  Sender: FDA-Public Use
  Company Number: None

PATIENT
  Age: 50 Year
  Sex: Male
  Weight: 104 kg

DRUGS (12)
  1. PREDNISOLONE [Suspect]
     Active Substance: PREDNISOLONE
     Indication: Dermatitis atopic
     Route: 061
     Dates: start: 20190507, end: 20190520
  2. UPADACITINIB [Suspect]
     Active Substance: UPADACITINIB
     Indication: Dermatitis atopic
     Dates: start: 20190507, end: 20190904
  3. UPADACITINIB [Suspect]
     Active Substance: UPADACITINIB
     Dates: start: 20190905, end: 20221215
  4. HYDROCORTISONE [Suspect]
     Active Substance: HYDROCORTISONE
     Indication: Dermatitis atopic
     Dates: start: 20190507, end: 20190521
  5. HYDROCORTISONE [Suspect]
     Active Substance: HYDROCORTISONE
     Indication: Dermatitis atopic
     Dates: start: 20190529, end: 20190603
  6. TRIAMCINOLONE ACETONIDE [Suspect]
     Active Substance: TRIAMCINOLONE ACETONIDE
     Indication: Dermatitis atopic
     Route: 061
     Dates: start: 20190507, end: 20190528
  7. VENTOLIN [Concomitant]
     Active Substance: ALBUTEROL SULFATE
     Indication: Asthma
     Dosage: 1 PUFF AS NECESSARY
     Dates: start: 2019
  8. SYMBICORT [Concomitant]
     Active Substance: BUDESONIDE\FORMOTEROL FUMARATE DIHYDRATE
  9. ADERMAN [PHENYLMERCURIC ACETATE] [Concomitant]
     Dates: start: 20190416
  10. LIPIKAR BAUME AP+ [Concomitant]
  11. BOEHMERIA NIVEA [Concomitant]
     Dosage: DOSE:  1 APPLICATION NECESSARY
     Dates: start: 20181116
  12. ACENOVAR [Concomitant]
     Indication: Asthma
     Dosage: 1 PUFF AS NECESSARY
     Dates: start: 201501

REACTIONS (2)
  - Asthma [Not Recovered/Not Resolved]
  - Condition aggravated [Not Recovered/Not Resolved]

NARRATIVE: CASE EVENT DATE: 20221017
